FAERS Safety Report 18477748 (Version 1)
Quarter: 2020Q4

REPORT INFORMATION
  Report Type: Spontaneous
  Country: US (occurrence: US)
  Receive Date: 20201108
  Receipt Date: 20201108
  Transmission Date: 20210114
  Serious: Yes (Hospitalization)
  Sender: FDA-Public Use
  Company Number: US-BSC-202000220

PATIENT
  Age: 65 Year
  Sex: Female

DRUGS (1)
  1. VARITHENA [Suspect]
     Active Substance: POLIDOCANOL
     Indication: PERIPHERAL VENOUS DISEASE
     Dates: start: 20200924, end: 20200924

REACTIONS (2)
  - Abscess [Unknown]
  - Blister [Unknown]

NARRATIVE: CASE EVENT DATE: 20201023
